FAERS Safety Report 5403108-7 (Version None)
Quarter: 2007Q3

REPORT INFORMATION
  Report Type: 
  Country: None (occurrence: None)
  Receive Date: 20070801
  Receipt Date: 20070720
  Transmission Date: 20080115
  Serious: Yes (Other)
  Sender: FDA-Public Use
  Company Number: GB-PFIZER INC-2007054306

PATIENT
  Age: 69 Year
  Sex: Male

DRUGS (11)
  1. LYRICA [Suspect]
     Indication: NEURALGIA
     Route: 048
  2. DRUG, UNSPECIFIED [Concomitant]
  3. ORAMORPH SR [Concomitant]
  4. MORPHINE SULFATE [Concomitant]
  5. VOLTAREN [Concomitant]
  6. PARACETAMOL [Concomitant]
  7. LANSOPRAZOLE [Concomitant]
     Route: 048
  8. DOSULEPIN [Concomitant]
     Route: 048
  9. ZOPICLONE [Concomitant]
     Route: 048
  10. LACTULOSE [Concomitant]
     Route: 048
  11. SENNA [Concomitant]
     Route: 048

REACTIONS (9)
  - BLEPHAROSPASM [None]
  - EYE IRRITATION [None]
  - FATIGUE [None]
  - FEELING DRUNK [None]
  - IRRITABILITY [None]
  - MUSCLE TWITCHING [None]
  - SPEECH DISORDER [None]
  - VISION BLURRED [None]
  - VISUAL DISTURBANCE [None]
